FAERS Safety Report 15894778 (Version 2)
Quarter: 2019Q1

REPORT INFORMATION
  Report Type: Spontaneous
  Country: US (occurrence: US)
  Receive Date: 20190131
  Receipt Date: 20190308
  Transmission Date: 20190417
  Serious: No
  Sender: FDA-Public Use
  Company Number: US-PFIZER INC-2019038978

PATIENT
  Age: 26 Year
  Sex: Female
  Weight: 70.9 kg

DRUGS (13)
  1. XELJANZ XR [Suspect]
     Active Substance: TOFACITINIB CITRATE
     Indication: RHEUMATOID ARTHRITIS
     Dosage: 11 MG, 1X/DAY (DISPENSE: 90 TABLET, REFILL: 3)
     Route: 048
  2. YAZ [Concomitant]
     Active Substance: DROSPIRENONE\ETHINYL ESTRADIOL
     Dosage: UNK UNK, 1X/DAY (DROSPIRENONE: 3/ETHINYL ESTRADIOL: 0.02) MG
     Route: 048
  3. ADVIL [IBUPROFEN] [Concomitant]
     Active Substance: IBUPROFEN
     Indication: PAIN
     Dosage: 200 MG, AS NEEDED (TAKE 200 MG BY MOUTH EVERY 6 (SIX) HOURS AS NEEDED)
     Route: 048
  4. DELTASONE [PREDNISONE] [Concomitant]
     Indication: RHEUMATOID ARTHRITIS
     Dosage: 5 MG, UNK
  5. CALCIUM 500+D3 [Concomitant]
     Active Substance: CALCIUM CARBONATE\CHOLECALCIFEROL
     Dosage: 1 DF, 2X/DAY (CALCIUM 500 + D, D3)
     Route: 048
  6. ZYRTEC [Concomitant]
     Active Substance: CETIRIZINE HYDROCHLORIDE
     Dosage: 10 MG, 1X/DAY
     Route: 048
  7. PLAQUENIL [Concomitant]
     Active Substance: HYDROXYCHLOROQUINE SULFATE
     Indication: RHEUMATOID ARTHRITIS
     Dosage: 400 MG (2 TABLETS), 1X/DAY
     Route: 048
     Dates: start: 201801
  8. DELTASONE [PREDNISONE] [Concomitant]
     Dosage: 10 MG, UNK
     Dates: start: 2018
  9. DELTASONE [PREDNISONE] [Concomitant]
     Dosage: 1 MG, 1X/DAY
     Route: 048
     Dates: start: 201801
  10. NASACORT AQ [Concomitant]
     Active Substance: TRIAMCINOLONE ACETONIDE
     Dosage: UNK UNK, 1X/DAY (PLACE 2 SPRAYS INTO BOTH NOSTRILS)
  11. MOTRIN [Concomitant]
     Active Substance: IBUPROFEN
     Indication: PAIN
     Dosage: 200 MG, AS NEEDED (TAKE 200 MG BY MOUTH EVERY 6 (SIX) HOURS AS NEEDED)
     Route: 048
  12. VITAMIN D3 [Concomitant]
     Active Substance: CHOLECALCIFEROL
     Dosage: 5000 IU, UNK
     Route: 048
  13. PRENAVITE [ASCORBIC ACID;CALCIUM CARBONATE;ERGOCALCIFEROL;FERROUS FUMA [Concomitant]
     Dosage: 1 DF, 1X/DAY
     Route: 048

REACTIONS (3)
  - Nasopharyngitis [Unknown]
  - Drug effect incomplete [Unknown]
  - Dry mouth [Unknown]

NARRATIVE: CASE EVENT DATE: 20181112
